FAERS Safety Report 25045987 (Version 1)
Quarter: 2025Q1

REPORT INFORMATION
  Report Type: Spontaneous
  Country: US (occurrence: None)
  Receive Date: 20250305
  Receipt Date: 20250305
  Transmission Date: 20250409
  Serious: Yes (Hospitalization, Other)
  Sender: FDA-CTU
  Company Number: None

PATIENT
  Age: 78 Year
  Sex: Male
  Weight: 74.25 kg

DRUGS (11)
  1. STEM CELL EXOSOME GROWTH FACTOR DERIVED OTC PRODUCTS [Suspect]
     Active Substance: STEM CELL EXOSOME GROWTH FACTOR DERIVED OTC PRODUCTS
     Route: 042
     Dates: start: 20250203, end: 20250203
  2. EZETIMIBE [Concomitant]
     Active Substance: EZETIMIBE
  3. PLAVIX [Concomitant]
     Active Substance: CLOPIDOGREL BISULFATE
  4. A [Concomitant]
  5. BORON [Concomitant]
     Active Substance: BORON
  6. TOCOPHEROL [Concomitant]
     Active Substance: TOCOPHEROL
  7. HERBALS\SAW PALMETTO [Concomitant]
     Active Substance: HERBALS\SAW PALMETTO
  8. KRILL OIL [Concomitant]
     Active Substance: DIETARY SUPPLEMENT\KRILL OIL
  9. CHOLESTOFF [Concomitant]
  10. ENZYMES [Concomitant]
  11. FIBER THERAPY (CALCIUM POLYCARBOPHIL) [Concomitant]
     Active Substance: CALCIUM POLYCARBOPHIL

REACTIONS (1)
  - Cerebrovascular accident [None]

NARRATIVE: CASE EVENT DATE: 20250205
